FAERS Safety Report 23500423 (Version 1)
Quarter: 2024Q1

REPORT INFORMATION
  Report Type: Report from Study
  Country: US (occurrence: US)
  Receive Date: 20240208
  Receipt Date: 20240208
  Transmission Date: 20240410
  Serious: Yes (Other)
  Sender: FDA-Public Use
  Company Number: US-BAUSCH-BL-2024-001870

PATIENT
  Age: 69 Year
  Sex: Female
  Weight: 98.42 kg

DRUGS (11)
  1. XIFAXAN [Suspect]
     Active Substance: RIFAXIMIN
     Indication: Hepatic encephalopathy
     Route: 048
     Dates: start: 202205
  2. XIFAXAN [Suspect]
     Active Substance: RIFAXIMIN
     Route: 048
  3. LACTULOSE [Suspect]
     Active Substance: LACTULOSE
     Indication: Hepatic encephalopathy
     Route: 065
  4. OMEPRAZOLE [Concomitant]
     Active Substance: OMEPRAZOLE
     Indication: Product used for unknown indication
     Dosage: TAKE 1 CAPSULE (40 MG) BY ORAL ROUTE 2 TIMES PER DAY BEFORE A MEAL]
     Route: 048
  5. PROPRANOLOL [Concomitant]
     Active Substance: PROPRANOLOL HYDROCHLORIDE
     Indication: Product used for unknown indication
     Dosage: [TAKE 1 TABLET (10 MG) BY ORAL ROUTE 3 TIMES PER DAY]
     Route: 048
  6. JANTOVEN [Concomitant]
     Active Substance: WARFARIN SODIUM
     Indication: Product used for unknown indication
     Dosage: TAKE 1 TABLET (1 MG) BY ORAL ROUTE ONCE DAILY
     Route: 048
  7. VITAMIN D NOS [Concomitant]
     Active Substance: VITAMIN D NOS
     Indication: Product used for unknown indication
     Dosage: 50,000 UNITS
  8. WARFARIN [Concomitant]
     Active Substance: WARFARIN
     Indication: Product used for unknown indication
     Dosage: TAKE 1 TABLET (1 MG) BY ORAL ROUTE ONCE DAILY
     Route: 048
  9. TWINRIX [Concomitant]
     Active Substance: HEPATITIS A VIRUS STRAIN HM175 ANTIGEN (FORMALDEHYDE INACTIVATED)\HEPATITIS B VIRUS SUBTYPE ADW2 HBS
     Indication: Product used for unknown indication
     Dosage: 720 ELISA UNIT, 20 MCG/ML INTRAMUSCULAR SYRINGE [GIVE AS DIRECTED]
     Route: 030
  10. FUROSEMIDE [Concomitant]
     Active Substance: FUROSEMIDE
     Indication: Product used for unknown indication
     Route: 048
  11. SPIRONOLACTONE [Concomitant]
     Active Substance: SPIRONOLACTONE
     Indication: Product used for unknown indication
     Route: 048

REACTIONS (19)
  - Portal shunt [Unknown]
  - Intestinal infarction [Unknown]
  - Portal hypertension [Unknown]
  - Mesenteric vein thrombosis [Unknown]
  - Hypertension [Unknown]
  - Chest pain [Unknown]
  - Hepatosplenomegaly [Recovered/Resolved]
  - Abdominal distension [Unknown]
  - Abnormal weight gain [Unknown]
  - Varices oesophageal [Unknown]
  - Chronic gastritis [Unknown]
  - Obesity [Unknown]
  - Metabolic syndrome [Unknown]
  - Gastrooesophageal reflux disease [Unknown]
  - Oedema [Unknown]
  - Non-alcoholic fatty liver [Unknown]
  - Dyspnoea [Recovered/Resolved]
  - Pruritus [Unknown]
  - Diarrhoea [Unknown]

NARRATIVE: CASE EVENT DATE: 20220501
